FAERS Safety Report 5512324-5 (Version None)
Quarter: 2007Q4

REPORT INFORMATION
  Report Type: 
  Country: None (occurrence: None)
  Receive Date: 20071112
  Receipt Date: 20071024
  Transmission Date: 20080405
  Serious: No
  Sender: FDA-Public Use
  Company Number: A0690354A

PATIENT
  Sex: Female

DRUGS (1)
  1. VERAMYST [Suspect]
     Indication: DRUG USE FOR UNKNOWN INDICATION
     Route: 065

REACTIONS (3)
  - DACRYOSTENOSIS ACQUIRED [None]
  - DRY EYE [None]
  - DRY MOUTH [None]
